FAERS Safety Report 23283646 (Version 1)
Quarter: 2023Q4

REPORT INFORMATION
  Report Type: Spontaneous
  Country: US (occurrence: US)
  Receive Date: 20231211
  Receipt Date: 20231211
  Transmission Date: 20240110
  Serious: Yes (Other)
  Sender: FDA-Public Use
  Company Number: US-SANDOZ-SDZ2023US063324

PATIENT
  Age: 39 Year
  Sex: Female

DRUGS (5)
  1. AZITHROMYCIN [Suspect]
     Active Substance: AZITHROMYCIN
     Indication: Arthritis bacterial
     Route: 065
  2. AZITHROMYCIN [Suspect]
     Active Substance: AZITHROMYCIN
     Indication: Opportunistic infection prophylaxis
  3. AMIKACIN [Suspect]
     Active Substance: AMIKACIN
     Indication: Arthritis bacterial
     Route: 065
  4. CEFOXITIN [Suspect]
     Active Substance: CEFOXITIN SODIUM
     Indication: Arthritis bacterial
     Route: 065
  5. LINEZOLID [Suspect]
     Active Substance: LINEZOLID
     Indication: Arthritis bacterial
     Route: 065

REACTIONS (5)
  - Neutropenia [Unknown]
  - Leukopenia [Unknown]
  - Condition aggravated [Unknown]
  - Eosinophilia [Unknown]
  - Platelet count decreased [Unknown]
